FAERS Safety Report 16016550 (Version 1)
Quarter: 2019Q1

REPORT INFORMATION
  Report Type: Spontaneous
  Country: ES (occurrence: ES)
  Receive Date: 20190228
  Receipt Date: 20190228
  Transmission Date: 20190418
  Serious: Yes (Other)
  Sender: FDA-Public Use
  Company Number: ES-009507513-1902ESP008861

PATIENT
  Sex: Female

DRUGS (1)
  1. ETONOGESTREL (+) ETHINYL ESTRADIOL [Suspect]
     Active Substance: ETHINYL ESTRADIOL\ETONOGESTREL
     Indication: CONTRACEPTION
     Dosage: 1 RING
     Route: 067

REACTIONS (3)
  - Abortion induced [Not Recovered/Not Resolved]
  - Pregnancy with contraceptive device [Unknown]
  - Unintended pregnancy [Not Recovered/Not Resolved]

NARRATIVE: CASE EVENT DATE: 20190219
